FAERS Safety Report 7372450-5 (Version None)
Quarter: 2011Q1

REPORT INFORMATION
  Report Type: 
  Country: None (occurrence: None)
  Receive Date: 20110324
  Receipt Date: 20110311
  Transmission Date: 20110831
  Serious: Yes (Hospitalization, Other)
  Sender: FDA-Public Use
  Company Number: PHHY2011IT20092

PATIENT
  Age: 39 Year
  Sex: Male

DRUGS (8)
  1. METHYLPREDNISOLONE [Suspect]
     Dosage: 125 MG, TID
  2. METHYLPREDNISOLONE [Suspect]
     Route: 042
  3. PREDNISONE [Suspect]
     Dosage: 10 MG, QD
  4. PREDNISONE [Suspect]
     Dosage: 15 MG, QD
     Route: 048
  5. TACROLIMUS [Suspect]
     Indication: IMMUNOSUPPRESSION
     Route: 048
  6. PREDNISONE [Suspect]
     Dosage: 25 MG, QD
     Route: 048
  7. CYCLOSPORINE [Suspect]
     Indication: IMMUNOSUPPRESSION
     Dosage: 1 MG/KG, QD
  8. AZATHIOPRINE [Suspect]
     Indication: LUNG TRANSPLANT
     Dosage: 2 MG/KG, QD
     Route: 048
     Dates: start: 20060501

REACTIONS (7)
  - DIARRHOEA [None]
  - ABDOMINAL PAIN [None]
  - PYREXIA [None]
  - RENAL FAILURE [None]
  - CLOSTRIDIUM DIFFICILE COLITIS [None]
  - ASCITES [None]
  - CLOSTRIDIUM TEST POSITIVE [None]
